FAERS Safety Report 22244580 (Version 3)
Quarter: 2025Q4

REPORT INFORMATION
  Report Type: Report from Study
  Country: US (occurrence: US)
  Receive Date: 20230424
  Receipt Date: 20251113
  Transmission Date: 20260117
  Serious: No
  Sender: BIOVITRUM
  Company Number: US-BIOVITRUM-2023-US-008898

PATIENT
  Age: 63 Year
  Sex: Male

DRUGS (2)
  1. KINERET [Suspect]
     Active Substance: ANAKINRA
     Indication: Pericardial effusion
     Dosage: 100 MG TWO TIMES A WEEK
     Route: 058
     Dates: start: 201906
  2. KINERET [Suspect]
     Active Substance: ANAKINRA
     Indication: Pericardial disease
     Dosage: 100MG DAILY
     Route: 058
     Dates: start: 20190615

REACTIONS (3)
  - Intentional product misuse [Unknown]
  - Heart rate decreased [Unknown]
  - Product temperature excursion issue [Unknown]

NARRATIVE: CASE EVENT DATE: 20190615
